FAERS Safety Report 7933516-1 (Version None)
Quarter: 2011Q4

REPORT INFORMATION
  Report Type: 
  Country: None (occurrence: None)
  Receive Date: 20111122
  Receipt Date: 20111114
  Transmission Date: 20120403
  Serious: Yes (Hospitalization, Other)
  Sender: FDA-Public Use
  Company Number: US-AMGEN-USASP2011059893

PATIENT
  Sex: Female

DRUGS (1)
  1. ENBREL [Suspect]
     Indication: RHEUMATOID ARTHRITIS
     Dosage: 25 MG, 2 TIMES/WK
     Dates: start: 20040201, end: 20110801

REACTIONS (6)
  - INJECTION SITE REACTION [None]
  - EAR DISORDER [None]
  - STRESS FRACTURE [None]
  - SINUSITIS [None]
  - LIGAMENT RUPTURE [None]
  - ARTHRALGIA [None]
